FAERS Safety Report 9260562 (Version 1)
Quarter: 2013Q2

REPORT INFORMATION
  Report Type: Spontaneous
  Country: ES (occurrence: ES)
  Receive Date: 20130429
  Receipt Date: 20130429
  Transmission Date: 20140414
  Serious: Yes (Other)
  Sender: FDA-Public Use
  Company Number: ES-ROCHE-1219528

PATIENT
  Age: 52 Year
  Sex: Female
  Weight: 93 kg

DRUGS (5)
  1. PEGASYS [Suspect]
     Indication: CHRONIC HEPATITIS C
     Route: 058
     Dates: start: 20121005, end: 20130322
  2. REBETOL [Interacting]
     Indication: CHRONIC HEPATITIS C
     Dosage: DAILY
     Route: 048
     Dates: start: 20121005, end: 20130327
  3. INCIVO [Interacting]
     Indication: CHRONIC HEPATITIS C
     Route: 048
     Dates: start: 20121102, end: 20130125
  4. EUCREAS [Concomitant]
     Indication: TYPE 2 DIABETES MELLITUS
     Dosage: DAILY: 50/1000 MG
     Route: 048
     Dates: end: 20130327
  5. CIPROFLOXACIN [Concomitant]
     Indication: URINARY TRACT INFECTION

REACTIONS (2)
  - Anaemia [Not Recovered/Not Resolved]
  - Drug interaction [Unknown]
